FAERS Safety Report 5449998-3 (Version None)
Quarter: 2007Q3

REPORT INFORMATION
  Report Type: 
  Country: None (occurrence: None)
  Receive Date: 20070912
  Receipt Date: 20070905
  Transmission Date: 20080115
  Serious: Yes (Hospitalization, Other)
  Sender: FDA-Public Use
  Company Number: HQWYE389118MAY06

PATIENT
  Sex: Male
  Weight: 58.2 kg

DRUGS (22)
  1. SIROLIMUS [Suspect]
     Indication: PROPHYLAXIS AGAINST TRANSPLANT REJECTION
     Route: 048
     Dates: start: 20030912
  2. ASPIRIN [Concomitant]
     Indication: PROPHYLAXIS
     Route: 048
     Dates: start: 20030129
  3. METFORMIN HCL [Concomitant]
     Indication: DIABETES MELLITUS
     Dosage: DOSE UNKNOWN
     Route: 048
     Dates: start: 20020527, end: 20060501
  4. METFORMIN HCL [Concomitant]
     Route: 048
     Dates: start: 20060515, end: 20060520
  5. METOPROLOL SUCCINATE [Concomitant]
     Indication: HYPERTENSION
     Route: 048
     Dates: start: 20050113
  6. PRAZOSIN HCL [Concomitant]
     Indication: HYPERTENSION
     Route: 065
     Dates: start: 20010719
  7. ISOSORBIDE DINITRATE [Concomitant]
     Indication: HYPERTENSION
     Route: 048
     Dates: start: 19991016
  8. ENALAPRIL [Concomitant]
     Indication: HYPERTENSION
     Route: 065
     Dates: start: 20031010
  9. CLORINDIONE [Concomitant]
     Indication: HYPERTENSION
     Route: 065
     Dates: start: 20051214, end: 20051218
  10. CLORINDIONE [Concomitant]
     Route: 065
     Dates: start: 20051219
  11. PRAVASTATIN [Concomitant]
     Indication: HYPERLIPIDAEMIA
     Route: 048
     Dates: start: 20040524
  12. AZATHIOPRINE [Concomitant]
     Indication: IMMUNOSUPPRESSANT DRUG THERAPY
     Route: 065
     Dates: start: 20030924, end: 20051214
  13. MYCOPHENOLATE MOFETIL [Concomitant]
     Indication: IMMUNOSUPPRESSANT DRUG THERAPY
     Route: 065
     Dates: start: 20051215, end: 20060228
  14. MYCOPHENOLATE MOFETIL [Concomitant]
     Route: 065
     Dates: start: 20060301
  15. PREDNISONE [Concomitant]
     Indication: IMMUNOSUPPRESSANT DRUG THERAPY
     Route: 065
     Dates: start: 20050303, end: 20060228
  16. PREDNISONE [Concomitant]
     Route: 065
     Dates: start: 20060301
  17. OMEPRAZOLE [Concomitant]
     Indication: PROPHYLAXIS
     Route: 048
     Dates: start: 20060312
  18. METOCLOPRAMIDE [Concomitant]
     Indication: NAUSEA
     Route: 048
     Dates: start: 20050328
  19. CHLORPHENIRAMINE MALEATE [Concomitant]
     Indication: ANTIALLERGIC THERAPY
     Route: 048
     Dates: start: 20060512, end: 20060515
  20. CHLORPHENIRAMINE MALEATE [Concomitant]
     Route: 048
     Dates: start: 20060519, end: 20060521
  21. CISAPRIDE [Concomitant]
     Indication: NAUSEA
     Route: 048
     Dates: start: 20060516, end: 20060521
  22. HUMULIN N [Concomitant]
     Dosage: DOSE UNSPECIFIED, AS NEEDED
     Route: 058
     Dates: start: 20010813, end: 20060530

REACTIONS (6)
  - CLEAR CELL CARCINOMA OF THE KIDNEY [None]
  - GASTROINTESTINAL HAEMORRHAGE [None]
  - HAEMOGLOBIN DECREASED [None]
  - PANCREATIC CYST [None]
  - PANCREATIC NECROSIS [None]
  - PANCREATITIS CHRONIC [None]
